FAERS Safety Report 9468496 (Version 2)
Quarter: 2013Q4

REPORT INFORMATION
  Report Type: Report from Study
  Country: MX (occurrence: MX)
  Receive Date: 20130821
  Receipt Date: 20131003
  Transmission Date: 20140711
  Serious: Yes (Hospitalization, Disabling)
  Sender: FDA-Public Use
  Company Number: MX-ROCHE-1264233

PATIENT
  Age: 38 Year
  Sex: Female
  Weight: 77 kg

DRUGS (3)
  1. XELODA [Suspect]
     Indication: BREAST CANCER METASTATIC
     Route: 048
     Dates: start: 20130802, end: 20130815
  2. TRASTUZUMAB [Suspect]
     Indication: BREAST CANCER METASTATIC
     Route: 042
     Dates: start: 201206, end: 201305
  3. TRASTUZUMAB [Suspect]
     Route: 042
     Dates: start: 20130731

REACTIONS (4)
  - Disease progression [Not Recovered/Not Resolved]
  - Nausea [Recovering/Resolving]
  - Blindness [Unknown]
  - Abasia [Unknown]
